FAERS Safety Report 12231700 (Version 1)
Quarter: 2016Q2

REPORT INFORMATION
  Report Type: Spontaneous
  Country: US (occurrence: US)
  Receive Date: 20160401
  Receipt Date: 20160401
  Transmission Date: 20160815
  Serious: Yes (Other)
  Sender: FDA-Public Use
  Company Number: US-TEVA-647523USA

PATIENT
  Sex: Female
  Weight: 113.5 kg

DRUGS (10)
  1. ANASTROZOLE. [Suspect]
     Active Substance: ANASTROZOLE
     Indication: BREAST CANCER
     Dosage: 1 MILLIGRAM DAILY;
     Route: 065
     Dates: start: 2013
  2. LISINOPRIL. [Suspect]
     Active Substance: LISINOPRIL
     Indication: BLOOD PRESSURE ABNORMAL
     Dosage: 10 MILLIGRAM DAILY;
     Route: 065
     Dates: start: 2008
  3. ATORVASTATIN CALCIUM. [Concomitant]
     Active Substance: ATORVASTATIN CALCIUM
     Indication: BLOOD CHOLESTEROL INCREASED
     Dosage: 20 MILLIGRAM DAILY;
     Route: 065
     Dates: start: 2011
  4. BACLOFEN. [Suspect]
     Active Substance: BACLOFEN
     Indication: HYPOTONIA
     Dosage: 30 MILLIGRAM DAILY;
     Route: 048
     Dates: start: 2014
  5. GENERIC BENADRYL [Concomitant]
     Active Substance: DIPHENHYDRAMINE HYDROCHLORIDE
     Indication: HYPERSENSITIVITY
     Dosage: AS NEEDED
     Dates: start: 2013
  6. FAMOTIDINE. [Suspect]
     Active Substance: FAMOTIDINE
     Indication: ADVERSE EVENT
     Dosage: 80 MILLIGRAM DAILY;
     Route: 065
     Dates: start: 2006
  7. CENTRUM SILVER 50+ FOR WOMEN [Concomitant]
     Indication: VITAMIN D DEFICIENCY
     Dates: start: 2011
  8. CENTRUM SILVER 50+ FOR WOMEN [Concomitant]
     Indication: CALCIUM DEFICIENCY
  9. CALTRATE CALCIUM AND VITAMIN D 600 + D3 [Concomitant]
     Indication: SUPPLEMENTATION THERAPY
     Dosage: PM
     Route: 065
     Dates: start: 2013
  10. NAPROXEN. [Suspect]
     Active Substance: NAPROXEN
     Dosage: 1000 MILLIGRAM DAILY;
     Route: 065

REACTIONS (4)
  - Fall [Unknown]
  - Hand fracture [Unknown]
  - Bone loss [Not Recovered/Not Resolved]
  - Gait disturbance [Not Recovered/Not Resolved]

NARRATIVE: CASE EVENT DATE: 2014
